FAERS Safety Report 16531190 (Version 1)
Quarter: 2019Q3

REPORT INFORMATION
  Report Type: Spontaneous
  Country: US (occurrence: US)
  Receive Date: 20190523
  Receipt Date: 20190523
  Transmission Date: 20191004
  Serious: No
  Sender: FDA-Public Use
  Company Number: None

PATIENT
  Age: 76 Year
  Sex: Male

DRUGS (1)
  1. PRAVASTATIN TAB 10MG [Suspect]
     Active Substance: PRAVASTATIN
     Route: 048
     Dates: start: 201901, end: 201904

REACTIONS (2)
  - Myalgia [None]
  - Skin disorder [None]

NARRATIVE: CASE EVENT DATE: 20190405
